FAERS Safety Report 8605433-5 (Version None)
Quarter: 2012Q3

REPORT INFORMATION
  Report Type: 
  Country: None (occurrence: None)
  Receive Date: 20120820
  Receipt Date: 20120813
  Transmission Date: 20120928
  Serious: Yes (Hospitalization, Other)
  Sender: FDA-Public Use
  Company Number: CA-JNJFOC-20120411730

PATIENT
  Sex: Male
  Weight: 73.4 kg

DRUGS (5)
  1. PREDNISONE TAB [Concomitant]
     Route: 065
  2. REMICADE [Suspect]
     Indication: CROHN'S DISEASE
     Route: 042
     Dates: start: 20120309
  3. ESOMEPRAZOLE MAGNESIUM [Concomitant]
     Route: 065
  4. OMEPRAZOLE [Concomitant]
     Route: 065
  5. MAGNESIUM [Concomitant]
     Dosage: ONCE IN AM
     Route: 048

REACTIONS (3)
  - HAEMOGLOBIN DECREASED [None]
  - RECTAL FISSURE [None]
  - DIARRHOEA HAEMORRHAGIC [None]
